FAERS Safety Report 5309811-1 (Version None)
Quarter: 2007Q2

REPORT INFORMATION
  Report Type: 
  Country: None (occurrence: None)
  Receive Date: 20070427
  Receipt Date: 20070223
  Transmission Date: 20071010
  Serious: No
  Sender: FDA-Public Use
  Company Number: US-GLAXOSMITHKLINE-A0640791A

PATIENT
  Sex: Male

DRUGS (3)
  1. ZOFRAN [Suspect]
     Indication: DRUG USE FOR UNKNOWN INDICATION
     Dosage: 8MG UNKNOWN
     Route: 048
     Dates: end: 20070220
  2. NYSTATIN [Concomitant]
  3. PERCOCET [Concomitant]

REACTIONS (1)
  - DYSGEUSIA [None]
